FAERS Safety Report 23363163 (Version 1)
Quarter: 2024Q1

REPORT INFORMATION
  Report Type: Spontaneous
  Country: US (occurrence: US)
  Receive Date: 20240103
  Receipt Date: 20240103
  Transmission Date: 20240409
  Serious: No
  Sender: FDA-Public Use
  Company Number: US-SPECTRUM PHARMACEUTICALS, INC.-23-R-US-00023

PATIENT

DRUGS (2)
  1. ROLVEDON [Suspect]
     Active Substance: EFLAPEGRASTIM-XNST
     Indication: Colony stimulating factor therapy
     Dosage: 13.2 MILLIGRAM, SINGLE
     Route: 058
     Dates: start: 20231007, end: 20231007
  2. FLUOROURACIL\LEUCOVORIN CALCIUM\OXALIPLATIN [Concomitant]
     Active Substance: FLUOROURACIL\LEUCOVORIN CALCIUM\OXALIPLATIN
     Indication: Product used for unknown indication
     Dosage: UNK
     Route: 042
     Dates: start: 20231004, end: 20231006

REACTIONS (1)
  - White blood cell count increased [Recovering/Resolving]

NARRATIVE: CASE EVENT DATE: 20231017
